FAERS Safety Report 9773819 (Version 1)
Quarter: 2013Q4

REPORT INFORMATION
  Report Type: Spontaneous
  Country: US (occurrence: US)
  Receive Date: 20131220
  Receipt Date: 20131220
  Transmission Date: 20140711
  Serious: Yes (Hospitalization, Other)
  Sender: FDA-Public Use
  Company Number: 2013SP002816

PATIENT
  Age: 70 Year
  Sex: Female

DRUGS (3)
  1. VANCOMYCIN [Suspect]
     Indication: PNEUMONIA
     Route: 042
  2. CIPROFLOXACIN [Concomitant]
     Indication: PNEUMONIA
     Route: 042
  3. ZOSYN [Concomitant]
     Indication: PNEUMONIA
     Route: 042

REACTIONS (3)
  - Linear IgA disease [Recovering/Resolving]
  - Rash pruritic [Recovering/Resolving]
  - Pain [Recovering/Resolving]
